FAERS Safety Report 25816995 (Version 1)
Quarter: 2025Q3

REPORT INFORMATION
  Report Type: Spontaneous
  Country: US (occurrence: US)
  Receive Date: 20250918
  Receipt Date: 20250918
  Transmission Date: 20251021
  Serious: No
  Sender: MACLEODS
  Company Number: US-MACLEODS PHARMA-MAC2025055240

PATIENT

DRUGS (1)
  1. LEVOTHYROXINE SODIUM [Suspect]
     Active Substance: LEVOTHYROXINE SODIUM
     Indication: Product used for unknown indication
     Route: 065

REACTIONS (8)
  - Peripheral swelling [Unknown]
  - Somnolence [Unknown]
  - Sleep disorder [Unknown]
  - Asthenia [Unknown]
  - Thyroid disorder [Unknown]
  - Drug ineffective [Unknown]
  - Product physical issue [Unknown]
  - Product solubility abnormal [Unknown]
